FAERS Safety Report 17644386 (Version 2)
Quarter: 2020Q2

REPORT INFORMATION
  Report Type: Spontaneous
  Country: JP (occurrence: JP)
  Receive Date: 20200408
  Receipt Date: 20200418
  Transmission Date: 20200713
  Serious: Yes (Hospitalization, Other)
  Sender: FDA-Public Use
  Company Number: JP-LUPIN PHARMACEUTICALS INC.-2020-01607

PATIENT
  Age: 84 Year
  Sex: Female
  Weight: 52.2 kg

DRUGS (7)
  1. AMANTADINE. [Interacting]
     Active Substance: AMANTADINE HYDROCHLORIDE
     Indication: ABULIA
     Dosage: 150 MILLIGRAM, TID, AFTER MEALS
     Route: 065
     Dates: start: 20180626, end: 20180718
  2. AMANTADINE. [Interacting]
     Active Substance: AMANTADINE HYDROCHLORIDE
     Indication: CEREBRAL INFARCTION
  3. HEPARIN SODIUM. [Concomitant]
     Active Substance: HEPARIN SODIUM
     Indication: PRODUCT USED FOR UNKNOWN INDICATION
     Dosage: UNK, NASOGASTRIC TUBE
     Route: 045
  4. DONEPEZIL. [Interacting]
     Active Substance: DONEPEZIL
     Dosage: 5 MILLIGRAM, QD, ON THE 24TH DAY, DISSOLVING TABLET, AFTER BREAKFAST
     Route: 048
     Dates: start: 20180708, end: 20180712
  5. APIXABAN [Concomitant]
     Active Substance: APIXABAN
     Indication: PRODUCT USED FOR UNKNOWN INDICATION
     Dosage: 5 MILLIGRAM, QD (NASOGASTRIC TUBE)
     Route: 045
  6. EDARAVONE [Concomitant]
     Active Substance: EDARAVONE
     Indication: PRODUCT USED FOR UNKNOWN INDICATION
     Dosage: UNK, NASOGASTRIC TUBE
     Route: 045
  7. DONEPEZIL. [Suspect]
     Active Substance: DONEPEZIL
     Indication: DEMENTIA ALZHEIMER^S TYPE
     Dosage: 3 MILLIGRAM, QD, ON THE 16TH DAY, DISSOLVING TABLET, AFTER BREAKFAST (DISSOLVING TABLET)
     Route: 048
     Dates: start: 20180629, end: 20180707

REACTIONS (11)
  - Musculoskeletal stiffness [Recovered/Resolved]
  - Toxicity to various agents [Recovered/Resolved]
  - Drug level increased [Recovered/Resolved]
  - Overdose [Unknown]
  - Dyskinesia [Recovered/Resolved]
  - Myoclonus [Recovered/Resolved]
  - Extrapyramidal disorder [Recovered/Resolved]
  - Drug interaction [Unknown]
  - Paratonia [Recovered/Resolved]
  - Tachycardia [Recovered/Resolved]
  - Pyrexia [Recovered/Resolved]

NARRATIVE: CASE EVENT DATE: 20180626
